FAERS Safety Report 17131272 (Version 2)
Quarter: 2021Q3

REPORT INFORMATION
  Report Type: Spontaneous
  Country: US (occurrence: US)
  Receive Date: 20191209
  Receipt Date: 20210722
  Transmission Date: 20211014
  Serious: Yes (Death, Life-Threatening, Hospitalization, Disabling, Other)
  Sender: FDA-Public Use
  Company Number: NVSC2019US048014

PATIENT
  Age: 2 Year
  Sex: Male
  Weight: 12.5 kg

DRUGS (18)
  1. GENTAMICIN. [Concomitant]
     Active Substance: GENTAMICIN
     Indication: PRODUCT USED FOR UNKNOWN INDICATION
     Dosage: 32 MG
     Route: 042
     Dates: start: 20190227, end: 20190228
  2. DEXAMETHASONE. [Concomitant]
     Active Substance: DEXAMETHASONE
     Dosage: 3.24 MG
     Route: 042
     Dates: start: 20190228, end: 20190303
  3. CASPOFUNGIN [Concomitant]
     Active Substance: CASPOFUNGIN
     Indication: PRODUCT USED FOR UNKNOWN INDICATION
     Dosage: 27.5 MG, Q24H
     Route: 042
     Dates: start: 20190227
  4. MEROPENEM. [Concomitant]
     Active Substance: MEROPENEM
     Indication: PRODUCT USED FOR UNKNOWN INDICATION
     Dosage: 500 MG, Q8H
     Route: 042
     Dates: start: 20190227, end: 20190301
  5. DEXAMETHASONE. [Concomitant]
     Active Substance: DEXAMETHASONE
     Indication: SPINAL CORD OEDEMA
     Dosage: 10 MG
     Route: 042
     Dates: start: 20190228, end: 20190303
  6. CLINDAMYCIN. [Concomitant]
     Active Substance: CLINDAMYCIN
     Indication: PRODUCT USED FOR UNKNOWN INDICATION
     Dosage: 164 MG, Q8H
     Route: 042
     Dates: start: 20190227, end: 20190227
  7. MEROPENEM. [Concomitant]
     Active Substance: MEROPENEM
     Dosage: 520 MG, Q8H
     Route: 042
     Dates: start: 20190306, end: 20190307
  8. AZTREONAM. [Concomitant]
     Active Substance: AZTREONAM
     Indication: PRODUCT USED FOR UNKNOWN INDICATION
     Dosage: 500 MG, Q48H
     Route: 042
     Dates: start: 20190227, end: 20190227
  9. REMIFENTANIL [Concomitant]
     Active Substance: REMIFENTANIL
     Indication: SEDATION
     Dosage: MAX 0.1 MC/KG/MIN CONTINOUS
     Route: 042
     Dates: start: 20190303, end: 20190307
  10. MIDAZOLAM. [Concomitant]
     Active Substance: MIDAZOLAM
     Indication: SEDATION
     Dosage: MAX 0.02 MG/KG/HR CONTINOUS
     Route: 042
     Dates: start: 20190227, end: 20190228
  11. SULFAMETHOXAZOLE AND TRIMETHOPRIM [Concomitant]
     Active Substance: SULFAMETHOXAZOLE\TRIMETHOPRIM
     Indication: PRODUCT USED FOR UNKNOWN INDICATION
     Dosage: 32 MG
     Route: 065
     Dates: start: 20190303
  12. VASOPRESSIN. [Concomitant]
     Active Substance: VASOPRESSIN
     Indication: PRODUCT USED FOR UNKNOWN INDICATION
     Dosage: MAX 40 MILLI?UNITS/KG/HR CONTINOUS
     Route: 042
     Dates: start: 20190227
  13. FENTANYL. [Concomitant]
     Active Substance: FENTANYL
     Indication: PRODUCT USED FOR UNKNOWN INDICATION
     Dosage: MAX 0.7 MCG/KG/HR CONTINOUS
     Route: 042
     Dates: start: 20190227, end: 20190303
  14. CYCLOPHOSPHAMIDE. [Concomitant]
     Active Substance: CYCLOPHOSPHAMIDE
     Indication: CHEMOTHERAPY
     Dosage: 500 MG/M2, QD (FOR 2 DAYS)
     Route: 065
     Dates: start: 20190204, end: 20190205
  15. KYMRIAH [Suspect]
     Active Substance: TISAGENLECLEUCEL
     Indication: ACUTE LYMPHOCYTIC LEUKAEMIA
     Dosage: 0.5 X 10E6/KG
     Route: 042
     Dates: start: 20190212, end: 20190212
  16. KEPPRA [Concomitant]
     Active Substance: LEVETIRACETAM
     Indication: SEIZURE
     Dosage: 130 NG, BID
     Route: 048
     Dates: start: 20190226
  17. KETAMINE [Concomitant]
     Active Substance: KETAMINE
     Indication: PRODUCT USED FOR UNKNOWN INDICATION
     Dosage: 10 MG, PRN
     Route: 042
     Dates: start: 20190228
  18. FLUDARABINE [Concomitant]
     Active Substance: FLUDARABINE PHOSPHATE
     Indication: CHEMOTHERAPY
     Dosage: 30 MG/M2 (FOR 4 DAYS)
     Route: 065
     Dates: start: 20190204, end: 20190207

REACTIONS (17)
  - Spinal cord oedema [Unknown]
  - Dependence on respirator [Unknown]
  - Lethargy [Unknown]
  - Encephalitis cytomegalovirus [Recovering/Resolving]
  - Acute lymphocytic leukaemia recurrent [Unknown]
  - Paralysis [Recovering/Resolving]
  - Cytokine release syndrome [Recovered/Resolved]
  - Malignant neoplasm progression [Unknown]
  - Mental status changes [Unknown]
  - Respiratory failure [Not Recovered/Not Resolved]
  - Poor quality sleep [Unknown]
  - Death [Fatal]
  - Inappropriate antidiuretic hormone secretion [Not Recovered/Not Resolved]
  - Pyrexia [Unknown]
  - Hypotension [Unknown]
  - Acute lymphocytic leukaemia [Unknown]
  - Cytomegalovirus chorioretinitis [Unknown]

NARRATIVE: CASE EVENT DATE: 20190226
